FAERS Safety Report 4646732-1 (Version None)
Quarter: 2005Q2

REPORT INFORMATION
  Report Type: 
  Country: None (occurrence: None)
  Receive Date: 20050427
  Receipt Date: 20050422
  Transmission Date: 20051028
  Serious: Yes (Life-Threatening)
  Sender: FDA-Public Use
  Company Number: FR-GLAXOSMITHKLINE-B0378830A

PATIENT
  Age: 49 Year
  Sex: Female

DRUGS (5)
  1. AUGMENTIN '125' [Suspect]
     Indication: INFECTION PROPHYLAXIS
     Dosage: 2G SINGLE DOSE
     Route: 042
     Dates: start: 20050112, end: 20050112
  2. NORCURON [Suspect]
     Dosage: 4MG SINGLE DOSE
     Route: 042
     Dates: start: 20050112, end: 20050112
  3. SUFENTA [Suspect]
     Dosage: 20MCG SINGLE DOSE
     Route: 042
     Dates: start: 20050112, end: 20050112
  4. DIPRIVAN [Suspect]
     Dosage: 150MG SINGLE DOSE
     Route: 042
     Dates: start: 20050112, end: 20050112
  5. TRACHEAL INTUBATION [Concomitant]
     Route: 048
     Dates: start: 20050112

REACTIONS (5)
  - ANAPHYLACTIC SHOCK [None]
  - ERYTHEMA [None]
  - HYPOTENSION [None]
  - OXYGEN SATURATION DECREASED [None]
  - VENTRICULAR EXTRASYSTOLES [None]
